FAERS Safety Report 8932096 (Version 1)
Quarter: 2012Q4

REPORT INFORMATION
  Report Type: 
  Country: FR (occurrence: FR)
  Receive Date: 20121128
  Receipt Date: 20121128
  Transmission Date: 20130627
  Serious: Yes (Hospitalization)
  Sender: FDA-Public Use
  Company Number: FR-ASTRAZENECA-2012SE89224

PATIENT
  Age: 792 Month
  Sex: Male

DRUGS (9)
  1. INEXIUM [Suspect]
     Dosage: DAILY
     Route: 048
     Dates: start: 20120727, end: 20121025
  2. EUPRESSYL [Suspect]
     Dosage: DAILY
     Route: 048
     Dates: end: 20121012
  3. LOXEN [Suspect]
     Route: 048
     Dates: end: 20121012
  4. TEMERIT [Suspect]
     Dosage: DAILY
     Route: 048
     Dates: end: 20121012
  5. NEORAL [Concomitant]
  6. KEPPRA [Concomitant]
  7. CELLCEPT [Concomitant]
  8. LASILIX [Concomitant]
  9. PARACETAMOL [Concomitant]

REACTIONS (2)
  - Renal failure acute [Recovering/Resolving]
  - Tubulointerstitial nephritis [Recovering/Resolving]
